FAERS Safety Report 25558446 (Version 2)
Quarter: 2025Q3

REPORT INFORMATION
  Report Type: Spontaneous
  Country: US (occurrence: US)
  Receive Date: 20250715
  Receipt Date: 20250715
  Transmission Date: 20251020
  Serious: No
  Sender: INTRABIO
  Company Number: US-IBO-202500078

PATIENT

DRUGS (1)
  1. AQNEURSA [Suspect]
     Active Substance: LEVACETYLLEUCINE
     Indication: Product used for unknown indication
     Route: 065
     Dates: start: 20250315

REACTIONS (1)
  - Tremor [Unknown]
